FAERS Safety Report 20735925 (Version 1)
Quarter: 2022Q2

REPORT INFORMATION
  Report Type: Spontaneous
  Country: TR (occurrence: TR)
  Receive Date: 20220421
  Receipt Date: 20220421
  Transmission Date: 20220720
  Serious: Yes (Hospitalization, Other)
  Sender: FDA-Public Use
  Company Number: TR-BIOVITRUM-2022TR05063

PATIENT
  Sex: Female

DRUGS (7)
  1. AVIBACTAM SODIUM\CEFTAZIDIME [Suspect]
     Active Substance: AVIBACTAM SODIUM\CEFTAZIDIME
     Indication: Klebsiella infection
     Dosage: UNKNOWN
     Route: 065
     Dates: start: 20220324
  2. INSULIN NOS [Concomitant]
     Active Substance: INSULIN NOS
     Dates: start: 2017
  3. CIPRALEX [Concomitant]
     Active Substance: ESCITALOPRAM OXALATE
  4. JANUMET [Concomitant]
     Active Substance: METFORMIN HYDROCHLORIDE\SITAGLIPTIN PHOSPHATE
  5. GLICLAZIDE [Concomitant]
     Active Substance: GLICLAZIDE
  6. BELOC [Concomitant]
  7. ANAKINRA [Suspect]
     Active Substance: ANAKINRA
     Indication: COVID-19

REACTIONS (5)
  - Leukaemic infiltration [Unknown]
  - Condition aggravated [Unknown]
  - Fungal infection [Unknown]
  - Klebsiella infection [Unknown]
  - Off label use [Unknown]
